FAERS Safety Report 13850580 (Version 3)
Quarter: 2017Q3

REPORT INFORMATION
  Report Type: Spontaneous
  Country: TW (occurrence: TW)
  Receive Date: 20170809
  Receipt Date: 20170815
  Transmission Date: 20171127
  Serious: Yes (Death, Hospitalization)
  Sender: FDA-Public Use
  Company Number: TW-ABBVIE-17P-153-2064715-00

PATIENT
  Age: 80 Year

DRUGS (2)
  1. VIEKIRAX [Suspect]
     Active Substance: OMBITASVIR\PARITAPREVIR\RITONAVIR
     Indication: HEPATITIS C
     Route: 048
     Dates: start: 20170719
  2. EXVIERA [Suspect]
     Active Substance: DASABUVIR
     Indication: HEPATITIS C
     Route: 048
     Dates: start: 20170719

REACTIONS (6)
  - Hepatic failure [Unknown]
  - Cholecystitis [Recovered/Resolved]
  - Shock [Fatal]
  - Pneumonia [Unknown]
  - Arterial rupture [Fatal]
  - Haemorrhage [Fatal]

NARRATIVE: CASE EVENT DATE: 20170806
